FAERS Safety Report 6672345-6 (Version None)
Quarter: 2010Q2

REPORT INFORMATION
  Report Type: 
  Country: None (occurrence: None)
  Receive Date: 20100408
  Receipt Date: 20100308
  Transmission Date: 20101027
  Serious: No
  Sender: FDA-Public Use
  Company Number: A0848877A

PATIENT
  Age: 73 Year
  Sex: Male

DRUGS (8)
  1. REQUIP XL [Suspect]
     Indication: PARKINSON'S DISEASE
     Dosage: 2MG PER DAY
     Route: 048
     Dates: start: 20100212
  2. LABETALOL HCL [Concomitant]
  3. C-500 [Concomitant]
  4. SIMVASTATIN [Concomitant]
  5. COENZYME Q10 [Concomitant]
  6. FEXOFENADINE [Concomitant]
  7. ECOTRIN [Concomitant]
  8. FOLIC ACID [Concomitant]

REACTIONS (2)
  - INCOHERENT [None]
  - SOMNOLENCE [None]
